FAERS Safety Report 7104273-6 (Version None)
Quarter: 2010Q4

REPORT INFORMATION
  Report Type: 
  Country: None (occurrence: None)
  Receive Date: 20101115
  Receipt Date: 20100615
  Transmission Date: 20110411
  Serious: No
  Sender: FDA-Public Use
  Company Number: US-ALLERGAN-1007861US

PATIENT
  Age: 61 Year
  Sex: Female

DRUGS (4)
  1. BOTOXA? [Suspect]
     Indication: TORTICOLLIS
     Dosage: UNK
     Dates: start: 20060401, end: 20060401
  2. BOTOXA? [Suspect]
     Indication: BLEPHAROSPASM
     Dosage: 320 UNITS, SINGLE
     Dates: start: 20100301, end: 20100301
  3. TYLENOL [Concomitant]
     Indication: HEADACHE
     Dosage: UNK
  4. KLONOPIN [Concomitant]
     Dosage: UNK

REACTIONS (3)
  - DYSPHAGIA [None]
  - DYSPNOEA [None]
  - SPEECH DISORDER [None]
